FAERS Safety Report 4398931-4 (Version None)
Quarter: 2004Q3

REPORT INFORMATION
  Report Type: 
  Country: None (occurrence: None)
  Receive Date: 20040712
  Receipt Date: 20040622
  Transmission Date: 20050211
  Serious: Yes (Hospitalization)
  Sender: FDA-Public Use
  Company Number: US_0406103846

PATIENT
  Age: 51 Year
  Sex: Female

DRUGS (1)
  1. GEMZAR [Suspect]
     Indication: SARCOMA
     Dosage: 19.2 G/M2 OTHER

REACTIONS (6)
  - BLOOD CREATININE INCREASED [None]
  - BLOOD LACTATE DEHYDROGENASE INCREASED [None]
  - BLOOD PRESSURE INCREASED [None]
  - HAPTOGLOBIN DECREASED [None]
  - THROMBOCYTOPENIA [None]
  - THROMBOTIC MICROANGIOPATHY [None]
